FAERS Safety Report 5161524-5 (Version None)
Quarter: 2006Q4

REPORT INFORMATION
  Report Type: 
  Country: None (occurrence: None)
  Receive Date: 20061130
  Receipt Date: 20060831
  Transmission Date: 20070319
  Serious: No
  Sender: FDA-Public Use
  Company Number: US-GLAXOSMITHKLINE-A0618781A

PATIENT
  Age: 16 Year
  Sex: Male

DRUGS (2)
  1. WELLBUTRIN XL [Suspect]
     Indication: AGITATION
     Dosage: 150MG PER DAY
     Route: 048
     Dates: start: 20050301
  2. ADDERALL 10 [Concomitant]

REACTIONS (1)
  - ALOPECIA [None]
